FAERS Safety Report 7846441-1 (Version None)
Quarter: 2011Q4

REPORT INFORMATION
  Report Type: 
  Country: None (occurrence: None)
  Receive Date: 20111025
  Receipt Date: 20111025
  Transmission Date: 20120403
  Serious: No
  Sender: FDA-Public Use
  Company Number: None

PATIENT
  Age: 71 Year
  Sex: Female
  Weight: 78.471 kg

DRUGS (1)
  1. ZOLPIDEM TARTRATE [Suspect]
     Indication: SLEEP DISORDER
     Dosage: I AT NIGHT FOR SLEEP
     Route: 048
     Dates: start: 20110919, end: 20111022

REACTIONS (4)
  - PRODUCT SUBSTITUTION ISSUE [None]
  - SLEEP TALKING [None]
  - FEELING ABNORMAL [None]
  - DRUG INEFFECTIVE [None]
